FAERS Safety Report 9954190 (Version 1)
Quarter: 2014Q1

REPORT INFORMATION
  Report Type: Report from Study
  Country: US (occurrence: US)
  Receive Date: 20140304
  Receipt Date: 20140304
  Transmission Date: 20141002
  Serious: No
  Sender: FDA-Public Use
  Company Number: US-ABBVIE-13P-163-1078879-00

PATIENT
  Age: 29 Year
  Sex: Female

DRUGS (8)
  1. HUMIRA [Suspect]
     Indication: CROHN^S DISEASE
     Dosage: LOADING DOSE
     Dates: start: 20130214, end: 20130214
  2. HUMIRA [Suspect]
     Dosage: LOADING DOSE
     Dates: start: 20130228, end: 20130228
  3. HUMIRA [Suspect]
     Dosage: IN ERROR
     Dates: start: 20130314, end: 20130314
  4. HUMIRA [Suspect]
     Dosage: IN ERROR
     Dates: start: 20130404
  5. PREDNISONE [Concomitant]
     Indication: PRODUCT USED FOR UNKNOWN INDICATION
     Dosage: TAPERING
     Dates: end: 20130418
  6. PREDNISONE [Concomitant]
  7. ZYRTEC [Concomitant]
     Indication: HYPERSENSITIVITY
  8. PRENATAL VITAMINS [Concomitant]
     Indication: PRODUCT USED FOR UNKNOWN INDICATION
     Dosage: DAILY

REACTIONS (4)
  - Injection site pain [Recovered/Resolved]
  - Injection site pain [Recovered/Resolved]
  - Incorrect dose administered [Unknown]
  - Incorrect dose administered [Unknown]
